FAERS Safety Report 23061660 (Version 2)
Quarter: 2024Q1

REPORT INFORMATION
  Report Type: Spontaneous
  Country: US (occurrence: US)
  Receive Date: 20231013
  Receipt Date: 20240111
  Transmission Date: 20240410
  Serious: No
  Sender: FDA-Public Use
  Company Number: US-BRISTOL-MYERS SQUIBB COMPANY-2023-145325

PATIENT
  Age: 66 Year
  Sex: Female
  Weight: 76.66 kg

DRUGS (1)
  1. EMPLICITI [Suspect]
     Active Substance: ELOTUZUMAB
     Indication: Plasma cell myeloma
     Dosage: FREQ : EVERY 7 DAYS, NOW EVERY 14 DAYS
     Route: 042

REACTIONS (3)
  - Fatigue [Unknown]
  - Asthenia [Unknown]
  - Off label use [Unknown]
